FAERS Safety Report 5728200-9 (Version None)
Quarter: 2008Q2

REPORT INFORMATION
  Report Type: 
  Country: None (occurrence: None)
  Receive Date: 20080501
  Receipt Date: 20080422
  Transmission Date: 20081010
  Serious: Yes (Hospitalization)
  Sender: FDA-Public Use
  Company Number: 163-20785-08011212

PATIENT
  Age: 71 Year
  Sex: Male
  Weight: 107 kg

DRUGS (8)
  1. THALOMID [Suspect]
     Indication: GLIOBLASTOMA MULTIFORME
     Dosage: 400 MG, QD, ORAL
     Route: 048
     Dates: start: 20071009
  2. TEMOZOLOMIDE [Suspect]
     Indication: GLIOBLASTOMA MULTIFORME
     Dosage: 300 MG,QD, 7 DAYS ON AND 7 DAYS OFF, ORAL
     Route: 048
     Dates: start: 20071009
  3. DECADRON [Concomitant]
  4. PRILOSEC [Concomitant]
  5. LASIX [Concomitant]
  6. POTASSIUM (POTASSIUM) [Concomitant]
  7. ISOTRETINOIN [Suspect]
     Indication: GLIOBLASTOMA MULTIFORME
     Dosage: 80 MG, BID, DAYS 1-21 OF A 28 DAY CYCLE
     Dates: start: 20071009
  8. CELEBREX [Suspect]
     Indication: GLIOBLASTOMA MULTIFORME
     Dosage: 400 MG, BID, ORAL
     Route: 048
     Dates: start: 20071009

REACTIONS (5)
  - DYSPNOEA [None]
  - FLUID RETENTION [None]
  - GASTROOESOPHAGEAL REFLUX DISEASE [None]
  - OEDEMA PERIPHERAL [None]
  - WEIGHT INCREASED [None]
